FAERS Safety Report 4807850-8 (Version None)
Quarter: 2005Q4

REPORT INFORMATION
  Report Type: 
  Country: None (occurrence: None)
  Receive Date: 20051020
  Receipt Date: 20051012
  Transmission Date: 20060501
  Serious: Yes (Other)
  Sender: FDA-Public Use
  Company Number: 2005142336

PATIENT
  Age: 79 Year
  Sex: Female
  Weight: 75 kg

DRUGS (5)
  1. ATORVASTATIN CALCIUM [Suspect]
     Indication: BLOOD CHOLESTEROL
     Dosage: (20 MG), ORAL
     Route: 048
     Dates: start: 20040301, end: 20050601
  2. SORTIS (ATORVASTATIN) [Concomitant]
  3. VALSARTAN [Concomitant]
  4. AMLODIPINE [Concomitant]
  5. ACETYLSALICYLIC ACID SRT [Concomitant]

REACTIONS (2)
  - BALANCE DISORDER [None]
  - MUSCULAR WEAKNESS [None]
